FAERS Safety Report 5227157-7 (Version None)
Quarter: 2007Q1

REPORT INFORMATION
  Report Type: 
  Country: None (occurrence: None)
  Receive Date: 20070201
  Receipt Date: 20070201
  Transmission Date: 20070707
  Serious: Yes (Hospitalization)
  Sender: FDA-Public Use
  Company Number: None

PATIENT
  Age: 53 Year
  Sex: Male
  Weight: 74.8 kg

DRUGS (1)
  1. GABAPENTIN [Suspect]
     Indication: BACK PAIN
     Dosage: 2 CAPSULES TID PO
     Route: 048
     Dates: start: 20050713, end: 20070125

REACTIONS (4)
  - ALCOHOL USE [None]
  - INCORRECT DOSE ADMINISTERED [None]
  - IRRITABILITY [None]
  - SUICIDE ATTEMPT [None]
